FAERS Safety Report 17684695 (Version 1)
Quarter: 2020Q2

REPORT INFORMATION
  Report Type: Spontaneous
  Country: CA (occurrence: CA)
  Receive Date: 20200420
  Receipt Date: 20200420
  Transmission Date: 20200714
  Serious: Yes (Death)
  Sender: FDA-Public Use
  Company Number: CA-ROCHE-2583906

PATIENT
  Age: 74 Year
  Sex: Male
  Weight: 117 kg

DRUGS (19)
  1. MS CONTIN [Concomitant]
     Active Substance: MORPHINE SULFATE
  2. SPIRIVA [Concomitant]
     Active Substance: TIOTROPIUM BROMIDE MONOHYDRATE
  3. ALENDRONATE [Concomitant]
     Active Substance: ALENDRONATE SODIUM
  4. RANITIDINE. [Concomitant]
     Active Substance: RANITIDINE
  5. TYLENOL [Concomitant]
     Active Substance: ACETAMINOPHEN
     Indication: ARTHRALGIA
     Route: 065
  6. ATROVENT [Concomitant]
     Active Substance: IPRATROPIUM BROMIDE
  7. HYDROXYCHLOROQUINE [Concomitant]
     Active Substance: HYDROXYCHLOROQUINE
  8. METHYLPREDNISOLONE. [Concomitant]
     Active Substance: METHYLPREDNISOLONE
  9. TECTA [Concomitant]
     Active Substance: PANTOPRAZOLE MAGNESIUM
  10. FUROSEMIDE. [Suspect]
     Active Substance: FUROSEMIDE
     Indication: PRODUCT USED FOR UNKNOWN INDICATION
     Route: 065
  11. ACETAMINOPHEN. [Concomitant]
     Active Substance: ACETAMINOPHEN
  12. MORPHINE [Suspect]
     Active Substance: MORPHINE
     Indication: PRODUCT USED FOR UNKNOWN INDICATION
     Route: 065
  13. RITUXAN [Suspect]
     Active Substance: RITUXIMAB
     Indication: RHEUMATOID ARTHRITIS
     Route: 041
  14. APO-SALVENT [SALBUTAMOL] [Concomitant]
     Active Substance: ALBUTEROL
  15. DIPHENHYDRAMINE HYDROCHLORIDE. [Concomitant]
     Active Substance: DIPHENHYDRAMINE HYDROCHLORIDE
  16. ESBRIET [Suspect]
     Active Substance: PIRFENIDONE
     Indication: IDIOPATHIC PULMONARY FIBROSIS
     Route: 048
  17. ADVAIR HFA [Concomitant]
     Active Substance: FLUTICASONE PROPIONATE\SALMETEROL XINAFOATE
  18. JUBLIA [Concomitant]
     Active Substance: EFINACONAZOLE
  19. ZANTAC [Concomitant]
     Active Substance: RANITIDINE HYDROCHLORIDE

REACTIONS (29)
  - Eyelid disorder [Fatal]
  - Fatigue [Fatal]
  - Influenza like illness [Fatal]
  - Malaise [Fatal]
  - Pulmonary function test decreased [Fatal]
  - Burning sensation [Fatal]
  - Lower respiratory tract infection viral [Fatal]
  - Weight decreased [Fatal]
  - Blood pressure increased [Fatal]
  - Erythema [Fatal]
  - Pneumonia [Fatal]
  - White blood cell count increased [Fatal]
  - Arthralgia [Fatal]
  - Joint swelling [Fatal]
  - Death [Fatal]
  - Asthenia [Fatal]
  - Blood pressure fluctuation [Fatal]
  - Dyspnoea [Fatal]
  - Nasopharyngitis [Fatal]
  - Oxygen saturation decreased [Fatal]
  - Wound [Fatal]
  - Fall [Fatal]
  - Infection [Fatal]
  - Chills [Fatal]
  - Constipation [Fatal]
  - Dyspnoea exertional [Fatal]
  - Heart rate increased [Fatal]
  - Peripheral swelling [Fatal]
  - Respiratory rate increased [Fatal]
